FAERS Safety Report 10358461 (Version 1)
Quarter: 2014Q3

REPORT INFORMATION
  Report Type: Spontaneous
  Country: GB (occurrence: None)
  Receive Date: 20140730
  Receipt Date: 20140730
  Transmission Date: 20150326
  Serious: Yes (Hospitalization, Other)
  Sender: FDA-Public Use
  Company Number: CL-577-2014

PATIENT
  Age: 60 Year
  Sex: Female

DRUGS (10)
  1. DOMPERIDONE [Concomitant]
     Active Substance: DOMPERIDONE
  2. RAMIPRIL. [Concomitant]
     Active Substance: RAMIPRIL
  3. METHADONE [Concomitant]
     Active Substance: METHADONE HYDROCHLORIDE
  4. PIPERCILLIN/TAZOBACTEM [Concomitant]
  5. MIDAZOLAM [Suspect]
     Active Substance: MIDAZOLAM\MIDAZOLAM HYDROCHLORIDE
     Indication: SEDATION
     Dosage: MAINTENANCE DOSE 2 MG/HR IV, DOSING FOR DRESSING CHANGE 4 MG IV 13 MINUTES PRN
     Route: 042
  6. RABEPRAZOLE [Concomitant]
     Active Substance: RABEPRAZOLE
  7. KETAMINE UNK [Suspect]
     Active Substance: KETAMINE
     Indication: ANALGESIC THERAPY
     Dosage: DOSING FOR DRESSING CHANGE:  20-40  MG IV Q40 MINUTES PRN, TOTAL RECEIVED (24 HRS):  120 MG?
     Route: 042
  8. SALBUTAMOL PUFFER [Concomitant]
  9. FLUTICASONE PUFFER [Concomitant]
  10. FERROUS FUMERATE [Concomitant]
     Active Substance: FERROUS FUMARATE

REACTIONS (2)
  - Drug interaction [None]
  - No therapeutic response [None]
